FAERS Safety Report 10168984 (Version 1)
Quarter: 2014Q2

REPORT INFORMATION
  Report Type: Spontaneous
  Country: US (occurrence: None)
  Receive Date: 20140509
  Receipt Date: 20140509
  Transmission Date: 20141212
  Serious: Yes (Hospitalization)
  Sender: FDA-Public Use
  Company Number: UTC-048167

PATIENT
  Age: 55 Year
  Sex: Female

DRUGS (1)
  1. REMODULIN (2.5 MILLIGRAM/MILLILITERS, INJECTION FOR INFUSION) (TREPROSTINIL SODIUM) [Suspect]
     Indication: COR PULMONALE CHRONIC
     Dosage: 2.88 UG/KG (0.002 UG/KG 1 IN 1 MIN) SUBCUTANEOUS
     Route: 058
     Dates: start: 20140408

REACTIONS (1)
  - Malaise [None]
